FAERS Safety Report 7073202-6 (Version None)
Quarter: 2010Q4

REPORT INFORMATION
  Report Type: 
  Country: None (occurrence: None)
  Receive Date: 20101029
  Receipt Date: 20100630
  Transmission Date: 20110411
  Serious: No
  Sender: FDA-Public Use
  Company Number: A0858923A

PATIENT
  Age: 81 Year
  Sex: Male
  Weight: 73.2 kg

DRUGS (3)
  1. ADVAIR DISKUS 100/50 [Suspect]
     Indication: PRODUCT USED FOR UNKNOWN INDICATION
     Dosage: 1PUFF TWICE PER DAY
     Route: 055
     Dates: start: 20100427, end: 20100506
  2. SIMVASTATIN [Concomitant]
  3. OMEPRAZOLE [Concomitant]

REACTIONS (2)
  - APHONIA [None]
  - DRY MOUTH [None]
